FAERS Safety Report 13182042 (Version 1)
Quarter: 2017Q1

REPORT INFORMATION
  Report Type: Spontaneous
  Country: US (occurrence: US)
  Receive Date: 20170202
  Receipt Date: 20170202
  Transmission Date: 20170428
  Serious: No
  Sender: FDA-Public Use
  Company Number: None

PATIENT
  Age: 51 Year
  Sex: Female
  Weight: 94.5 kg

DRUGS (9)
  1. ATORVASTATIN [Suspect]
     Active Substance: ATORVASTATIN
     Indication: BLOOD CHOLESTEROL ABNORMAL
     Dosage: ?          QUANTITY:1 TABLET(S);?
     Route: 048
     Dates: start: 20161201, end: 20170116
  2. METFORMIN [Concomitant]
     Active Substance: METFORMIN HYDROCHLORIDE
  3. DOXEPIN HCL [Concomitant]
     Active Substance: DOXEPIN HYDROCHLORIDE
  4. LISINOPRIL. [Concomitant]
     Active Substance: LISINOPRIL
  5. ASPIRIN. [Concomitant]
     Active Substance: ASPIRIN
  6. AFRIN [Concomitant]
     Active Substance: OXYMETAZOLINE
  7. GLIPIZIDE. [Concomitant]
     Active Substance: GLIPIZIDE
  8. ESCITALOPRAM [Concomitant]
     Active Substance: ESCITALOPRAM OXALATE
  9. GABAPENTIN. [Concomitant]
     Active Substance: GABAPENTIN

REACTIONS (15)
  - Musculoskeletal stiffness [None]
  - Asthenia [None]
  - Myalgia [None]
  - Movement disorder [None]
  - Hyperaesthesia [None]
  - Arthralgia [None]
  - Diarrhoea [None]
  - Pain [None]
  - Libido decreased [None]
  - Muscle spasms [None]
  - Dry mouth [None]
  - Flatulence [None]
  - Abdominal pain upper [None]
  - Malaise [None]
  - Muscular weakness [None]

NARRATIVE: CASE EVENT DATE: 20161208
